FAERS Safety Report 18642617 (Version 1)
Quarter: 2020Q4

REPORT INFORMATION
  Report Type: Spontaneous
  Country: US (occurrence: US)
  Receive Date: 20201220
  Receipt Date: 20201220
  Transmission Date: 20210114
  Serious: No
  Sender: FDA-Public Use
  Company Number: None

PATIENT
  Age: 64 Year
  Sex: Female
  Weight: 53.1 kg

DRUGS (2)
  1. SAMBUCOL COLD AND FLU NASAL RELIEF [Suspect]
     Active Substance: HOMEOPATHICS
     Indication: NASOPHARYNGITIS
     Dosage: ?          OTHER STRENGTH:TABLET;QUANTITY:30 TABLET(S);?
     Route: 060
     Dates: start: 20201215, end: 20201220
  2. STANDARD VITAMINS [Concomitant]

REACTIONS (2)
  - Arthritis [None]
  - Joint stiffness [None]

NARRATIVE: CASE EVENT DATE: 20201220
